FAERS Safety Report 10067450 (Version 1)
Quarter: 2014Q2

REPORT INFORMATION
  Report Type: Spontaneous
  Country: US (occurrence: None)
  Receive Date: 20140408
  Receipt Date: 20140408
  Transmission Date: 20141212
  Serious: Yes (Hospitalization)
  Sender: FDA-Public Use
  Company Number: None

PATIENT
  Age: 53 Year
  Sex: Male
  Weight: 97 kg

DRUGS (10)
  1. PONATINIB [Suspect]
     Indication: ILL-DEFINED DISORDER
     Route: 048
     Dates: start: 20140322, end: 20140330
  2. IMODIUM [Concomitant]
  3. ALLOPURINOL [Concomitant]
  4. ATIVAN [Concomitant]
  5. CITALOPRAM [Concomitant]
  6. BACTRIM [Concomitant]
  7. VALTREX [Concomitant]
  8. ZOFRAN [Concomitant]
  9. PONATINIB [Concomitant]
  10. TRAMADOL [Concomitant]

REACTIONS (11)
  - Convulsion [None]
  - Amnesia [None]
  - VIIth nerve paralysis [None]
  - Influenza like illness [None]
  - Dyspnoea [None]
  - Dehydration [None]
  - Subdural haematoma [None]
  - Subarachnoid haemorrhage [None]
  - Meningioma [None]
  - Thrombocytopenia [None]
  - Haemorrhage intracranial [None]
